FAERS Safety Report 4431040-4 (Version None)
Quarter: 2004Q3

REPORT INFORMATION
  Report Type: 
  Country: None (occurrence: None)
  Receive Date: 20040818
  Receipt Date: 20040803
  Transmission Date: 20050211
  Serious: Yes (Death)
  Sender: FDA-Public Use
  Company Number: 2004S1002316

PATIENT
  Age: 51 Year
  Sex: Female

DRUGS (11)
  1. CLOZAPINE [Suspect]
     Indication: PSYCHOTIC DISORDER
     Dosage: 100MG BID, ORAL
     Route: 048
     Dates: start: 20030905
  2. MORPHINE SULFATE [Concomitant]
  3. METRONIDAZOLE [Concomitant]
  4. POTASSIUM CHLORIDE [Concomitant]
  5. LORAZEPAM [Concomitant]
  6. MEMANTINE HCL [Concomitant]
  7. VENTAFAXINE [Concomitant]
  8. DONEPEZIL HCL [Concomitant]
  9. MIRTAZAPINE [Concomitant]
  10. PANTOPRAZOLE [Concomitant]
  11. CALCIUM CARBONATE [Concomitant]

REACTIONS (1)
  - DEATH [None]
